FAERS Safety Report 4655477-3 (Version None)
Quarter: 2005Q2

REPORT INFORMATION
  Report Type: 
  Country: None (occurrence: None)
  Receive Date: 20050505
  Receipt Date: 20050419
  Transmission Date: 20051028
  Serious: Yes (Other)
  Sender: FDA-Public Use
  Company Number: DSA_26337_2005

PATIENT
  Age: 74 Year
  Sex: Female

DRUGS (5)
  1. ATIVAN [Suspect]
     Dates: start: 20040101
  2. LEXAPRO [Suspect]
     Indication: ANXIETY
     Dosage: 10 MG Q DAY PO
     Route: 048
     Dates: start: 20040101, end: 20040101
  3. LEXAPRO [Suspect]
     Indication: DEPRESSION
     Dosage: 10 MG Q DAY PO
     Route: 048
     Dates: start: 20040101, end: 20040101
  4. LEXAPRO [Suspect]
     Indication: ANXIETY
     Dosage: 5 MG Q DAY PO
     Route: 048
     Dates: start: 20040101, end: 20040101
  5. LEXAPRO [Suspect]
     Indication: DEPRESSION
     Dosage: 5 MG Q DAY PO
     Route: 048
     Dates: start: 20040101, end: 20040101

REACTIONS (3)
  - CONFUSIONAL STATE [None]
  - DRUG INTERACTION [None]
  - MEMORY IMPAIRMENT [None]
